FAERS Safety Report 18526876 (Version 1)
Quarter: 2020Q4

REPORT INFORMATION
  Report Type: Spontaneous
  Country: US (occurrence: US)
  Receive Date: 20201119
  Receipt Date: 20201119
  Transmission Date: 20210114
  Serious: Yes (Other)
  Sender: FDA-Public Use
  Company Number: None

PATIENT
  Age: 61 Year
  Sex: Female
  Weight: 93.44 kg

DRUGS (1)
  1. CLOPIDOGREL [Suspect]
     Active Substance: CLOPIDOGREL BISULFATE
     Indication: TRANSIENT ISCHAEMIC ATTACK
     Dosage: ?          OTHER FREQUENCY:9 DAY;?
     Route: 048
     Dates: start: 201008

REACTIONS (3)
  - Rash [None]
  - Product substitution issue [None]
  - Pyrexia [None]

NARRATIVE: CASE EVENT DATE: 202008
